FAERS Safety Report 4503367-9 (Version None)
Quarter: 2004Q4

REPORT INFORMATION
  Report Type: 
  Country: None (occurrence: None)
  Receive Date: 20041112
  Receipt Date: 20041027
  Transmission Date: 20050328
  Serious: Yes (Death)
  Sender: FDA-Public Use
  Company Number: 2004-DE-05627GD

PATIENT
  Age: 39 Year
  Sex: Female

DRUGS (2)
  1. PARACETAMOL (PARACETAMOL) [Suspect]
  2. DICLOFENAC (DICLOFENAC) [Suspect]

REACTIONS (21)
  - ALPHA TUMOUR NECROSIS FACTOR INCREASED [None]
  - ANURIA [None]
  - BLOOD CREATINE PHOSPHOKINASE INCREASED [None]
  - BLOOD LACTATE DEHYDROGENASE INCREASED [None]
  - BLOOD LACTIC ACID INCREASED [None]
  - CARDIOMYOPATHY [None]
  - COMPLICATIONS OF TRANSPLANT SURGERY [None]
  - ELECTROCARDIOGRAM ST SEGMENT ELEVATION [None]
  - ENCEPHALOPATHY [None]
  - ENDOTHELIN INCREASED [None]
  - GASTROINTESTINAL ISCHAEMIA [None]
  - HEPATIC FAILURE [None]
  - INTERLEUKIN LEVEL INCREASED [None]
  - LIVER TRANSPLANT [None]
  - MYOCARDIAL ISCHAEMIA [None]
  - PANCREATITIS NECROTISING [None]
  - POISONING DELIBERATE [None]
  - SHOCK [None]
  - SYSTEMIC INFLAMMATORY RESPONSE SYNDROME [None]
  - VASOCONSTRICTION [None]
  - VENTRICULAR FIBRILLATION [None]
